FAERS Safety Report 10591062 (Version 1)
Quarter: 2014Q4

REPORT INFORMATION
  Report Type: Spontaneous
  Country: US (occurrence: US)
  Receive Date: 20141118
  Receipt Date: 20141118
  Transmission Date: 20150529
  Serious: Yes (Death, Life-Threatening, Hospitalization, Disabling, Other)
  Sender: FDA-Public Use
  Company Number: US-009507513-1411USA004985

PATIENT
  Age: 25 Year
  Sex: Male

DRUGS (1)
  1. DULERA [Suspect]
     Active Substance: FORMOTEROL FUMARATE DIHYDRATE\MOMETASONE FUROATE
     Indication: ASTHMA
     Dosage: 2 INHALATIONS, BID, ROUTE: ORAL INHALER
     Route: 055
     Dates: start: 201407

REACTIONS (2)
  - Loss of consciousness [Fatal]
  - Asthma [Fatal]

NARRATIVE: CASE EVENT DATE: 20140927
